FAERS Safety Report 4402711-0 (Version None)
Quarter: 2004Q3

REPORT INFORMATION
  Report Type: 
  Country: None (occurrence: None)
  Receive Date: 20040721
  Receipt Date: 20040224
  Transmission Date: 20050211
  Serious: No
  Sender: FDA-Public Use
  Company Number: US-BRISTOL-MYERS SQUIBB COMPANY-12516423

PATIENT
  Age: 38 Year
  Sex: Female

DRUGS (1)
  1. DOVONEX [Suspect]
     Route: 061

REACTIONS (2)
  - EYE IRRITATION [None]
  - MEDICATION ERROR [None]
